FAERS Safety Report 6400597-6 (Version None)
Quarter: 2009Q4

REPORT INFORMATION
  Report Type: 
  Country: None (occurrence: None)
  Receive Date: 20091014
  Receipt Date: 20091002
  Transmission Date: 20100525
  Serious: Yes (Disabling, Other)
  Sender: FDA-Public Use
  Company Number: PHEH2009US04854

PATIENT
  Sex: Female
  Weight: 60.45 kg

DRUGS (1)
  1. RECLAST [Suspect]
     Indication: OSTEOPOROSIS
     Dosage: UNK
     Dates: start: 20090428, end: 20090428

REACTIONS (8)
  - ARTHRALGIA [None]
  - BONE PAIN [None]
  - CALCINOSIS [None]
  - ECHOCARDIOGRAM ABNORMAL [None]
  - INTERVERTEBRAL DISC DEGENERATION [None]
  - MOVEMENT DISORDER [None]
  - MYALGIA [None]
  - SPINAL COMPRESSION FRACTURE [None]
